FAERS Safety Report 6497296-1 (Version None)
Quarter: 2009Q4

REPORT INFORMATION
  Report Type: 
  Country: None (occurrence: None)
  Receive Date: 20091215
  Receipt Date: 20090816
  Transmission Date: 20100525
  Serious: No
  Sender: FDA-Public Use
  Company Number: A0803287A

PATIENT
  Sex: Male

DRUGS (1)
  1. AVODART [Suspect]
     Indication: PROSTATE CANCER
     Route: 065

REACTIONS (2)
  - DRUG EFFECT DECREASED [None]
  - PROSTATIC SPECIFIC ANTIGEN INCREASED [None]
